FAERS Safety Report 4547662-6 (Version None)
Quarter: 2005Q1

REPORT INFORMATION
  Report Type: 
  Country: None (occurrence: None)
  Receive Date: 20050107
  Receipt Date: 20041229
  Transmission Date: 20050727
  Serious: Yes (Hospitalization)
  Sender: FDA-Public Use
  Company Number: FR-ABBOTT-05P-056-0285121-00

PATIENT
  Sex: Female

DRUGS (11)
  1. ZECLAR [Suspect]
     Indication: NASOPHARYNGITIS
     Route: 048
     Dates: start: 20040313, end: 20040321
  2. CO-ADVIL [Suspect]
     Indication: DRUG USE FOR UNKNOWN INDICATION
     Route: 048
     Dates: start: 20040313, end: 20040321
  3. MOXONIDINE [Concomitant]
     Indication: DRUG USE FOR UNKNOWN INDICATION
  4. ACEBUTOLOL [Concomitant]
     Indication: DRUG USE FOR UNKNOWN INDICATION
  5. CAPOZIDE [Concomitant]
     Indication: DRUG USE FOR UNKNOWN INDICATION
  6. CAPTOPRIL [Concomitant]
     Indication: DRUG USE FOR UNKNOWN INDICATION
  7. FOLIC ACID [Concomitant]
     Indication: DRUG USE FOR UNKNOWN INDICATION
  8. DIOSMIN [Concomitant]
     Indication: DRUG USE FOR UNKNOWN INDICATION
  9. TRIMETAZIDINE [Concomitant]
     Indication: DRUG USE FOR UNKNOWN INDICATION
  10. DI-GESIC [Concomitant]
     Indication: DRUG USE FOR UNKNOWN INDICATION
  11. ACETYLSALICYLATE LYSINE [Concomitant]
     Indication: DRUG USE FOR UNKNOWN INDICATION

REACTIONS (3)
  - EOSINOPHILIA [None]
  - PYREXIA [None]
  - TOXIC SKIN ERUPTION [None]
